FAERS Safety Report 14622047 (Version 1)
Quarter: 2018Q1

REPORT INFORMATION
  Report Type: Other
  Country: FR (occurrence: FR)
  Receive Date: 20180311
  Receipt Date: 20180311
  Transmission Date: 20180509
  Serious: Yes (Other)
  Sender: FDA-Public Use
  Company Number: FR-GLENMARK PHARMACEUTICALS-2017GMK033041

PATIENT

DRUGS (3)
  1. VINCRISTINE SULFATE. [Interacting]
     Active Substance: VINCRISTINE SULFATE
     Indication: ACUTE LYMPHOCYTIC LEUKAEMIA
     Dosage: 2 MG, UNK (FOUR INFUSIONS)
     Route: 042
  2. VORICONAZOLE. [Suspect]
     Active Substance: VORICONAZOLE
     Indication: BRONCHOPULMONARY ASPERGILLOSIS
     Dosage: 300 MG/12 HOURS
     Route: 042
  3. VINCRISTINE SULFATE. [Interacting]
     Active Substance: VINCRISTINE SULFATE
     Dosage: 1.5 MG, UNK
     Route: 042

REACTIONS (9)
  - Arthralgia [Unknown]
  - Confusional state [Unknown]
  - Drug interaction [Unknown]
  - Hypoaesthesia [Unknown]
  - Neuralgia [Unknown]
  - Hallucination, auditory [Unknown]
  - Musculoskeletal pain [Unknown]
  - Hallucination, visual [Unknown]
  - Disorientation [Unknown]
